FAERS Safety Report 26153437 (Version 1)
Quarter: 2025Q4

REPORT INFORMATION
  Report Type: Spontaneous
  Country: US (occurrence: US)
  Receive Date: 20251214
  Receipt Date: 20251214
  Transmission Date: 20260118
  Serious: Yes (Other)
  Sender: PFIZER
  Company Number: US-PFIZER INC-202500240738

PATIENT
  Sex: Female

DRUGS (1)
  1. TIVDAK [Suspect]
     Active Substance: TISOTUMAB VEDOTIN-TFTV
     Indication: Cervix carcinoma
     Dosage: 0.9 MG/KG, EVERY 3 WEEKS
     Route: 042

REACTIONS (1)
  - Neuropathy peripheral [Recovering/Resolving]
